FAERS Safety Report 23719653 (Version 1)
Quarter: 2024Q2

REPORT INFORMATION
  Report Type: Other
  Country: CN (occurrence: CN)
  Receive Date: 20240408
  Receipt Date: 20240408
  Transmission Date: 20240716
  Serious: Yes (Hospitalization, Other)
  Sender: FDA-Public Use
  Company Number: CN-PARATEK PHARMACEUTICALS, INC.-2024PTK00255

PATIENT
  Age: 55 Year
  Sex: Male

DRUGS (1)
  1. NUZYRA [Suspect]
     Active Substance: OMADACYCLINE
     Indication: Gastrointestinal haemorrhage
     Dosage: 0.1 G, 1X/DAY
     Route: 041
     Dates: start: 20240301, end: 20240305

REACTIONS (2)
  - Long QT syndrome [Unknown]
  - Off label use [Recovered/Resolved]

NARRATIVE: CASE EVENT DATE: 20240301
